FAERS Safety Report 13006047 (Version 1)
Quarter: 2016Q4

REPORT INFORMATION
  Report Type: Report from Study
  Country: CN (occurrence: CN)
  Receive Date: 20161207
  Receipt Date: 20161207
  Transmission Date: 20170207
  Serious: Yes (Death)
  Sender: FDA-Public Use
  Company Number: CN-SA-2016SA222628

PATIENT
  Age: 33 Year
  Sex: Male
  Weight: 50 kg

DRUGS (5)
  1. FU [Suspect]
     Active Substance: FLUOROURACIL
     Indication: HEPATOCELLULAR CARCINOMA
     Route: 040
     Dates: end: 20160220
  2. ELOXATIN [Suspect]
     Active Substance: OXALIPLATIN
     Indication: HEPATOCELLULAR CARCINOMA
     Route: 065
     Dates: start: 20160126, end: 20160220
  3. LEUCOVORIN. [Suspect]
     Active Substance: LEUCOVORIN
     Indication: HEPATOCELLULAR CARCINOMA
     Route: 065
     Dates: end: 20160221
  4. FU [Suspect]
     Active Substance: FLUOROURACIL
     Indication: HEPATOCELLULAR CARCINOMA
     Route: 048
  5. FU [Suspect]
     Active Substance: FLUOROURACIL
     Indication: HEPATOCELLULAR CARCINOMA
     Dosage: ROUTE-CONTINOUS IV INFUSION
     Dates: end: 20160221

REACTIONS (1)
  - Hepatic cancer [Fatal]

NARRATIVE: CASE EVENT DATE: 20160318
